FAERS Safety Report 18374383 (Version 1)
Quarter: 2020Q4

REPORT INFORMATION
  Report Type: Spontaneous
  Country: IN (occurrence: IN)
  Receive Date: 20201013
  Receipt Date: 20201013
  Transmission Date: 20210114
  Serious: Yes (Other)
  Sender: FDA-Public Use
  Company Number: IN-SUN PHARMACEUTICAL INDUSTRIES LTD-2019R1-226229

PATIENT
  Age: 55 Year
  Sex: Male

DRUGS (2)
  1. PHENYTOIN. [Suspect]
     Active Substance: PHENYTOIN
     Indication: IDIOPATHIC GENERALISED EPILEPSY
     Dosage: 400 MILLIGRAM, DAILY
     Route: 048
  2. PHENYTOIN. [Suspect]
     Active Substance: PHENYTOIN
     Indication: SEIZURE
     Dosage: UNK
     Route: 042

REACTIONS (2)
  - Hyperammonaemic encephalopathy [Recovered/Resolved]
  - Toxicity to various agents [Unknown]
